FAERS Safety Report 24340728 (Version 1)
Quarter: 2024Q3

REPORT INFORMATION
  Report Type: Spontaneous
  Country: JP (occurrence: JP)
  Receive Date: 20240919
  Receipt Date: 20240919
  Transmission Date: 20241016
  Serious: Yes (Other)
  Sender: FERRING
  Company Number: JP-ferring-EVA202401364FERRINGPH

PATIENT

DRUGS (2)
  1. DESMOPRESSIN ACETATE [Suspect]
     Active Substance: DESMOPRESSIN ACETATE
     Indication: Diabetes insipidus
     Route: 048
  2. DESMOPRESSIN [Suspect]
     Active Substance: DESMOPRESSIN
     Indication: Diabetes insipidus
     Route: 065

REACTIONS (2)
  - Asphyxia [Unknown]
  - Therapeutic response decreased [Unknown]
